FAERS Safety Report 10452131 (Version 1)
Quarter: 2014Q3

REPORT INFORMATION
  Report Type: Spontaneous
  Country: US (occurrence: None)
  Receive Date: 20140807
  Receipt Date: 20140807
  Transmission Date: 20150326
  Serious: Yes (Other)
  Sender: FDA-Public Use
  Company Number: 2012SP033973

PATIENT
  Sex: Male

DRUGS (2)
  1. CLARITIN [Suspect]
     Active Substance: LORATADINE
     Indication: PRODUCT USED FOR UNKNOWN INDICATION
     Route: 048
     Dates: start: 201205
  2. CLARITIN [Suspect]
     Active Substance: LORATADINE
     Indication: MEDICAL OBSERVATION
     Route: 048
     Dates: start: 201205

REACTIONS (2)
  - Hypersensitivity [None]
  - Overdose [None]

NARRATIVE: CASE EVENT DATE: 201205
